FAERS Safety Report 5957351-9 (Version None)
Quarter: 2008Q4

REPORT INFORMATION
  Report Type: 
  Country: None (occurrence: None)
  Receive Date: 20081114
  Receipt Date: 20081031
  Transmission Date: 20090506
  Serious: Yes (Life-Threatening)
  Sender: FDA-Public Use
  Company Number: GB-DEXPHARM-20081278

PATIENT
  Age: 3 Year
  Sex: Female

DRUGS (4)
  1. OMEPRAZOLE [Suspect]
     Dosage: 20 MG MILLGRAM(S)
     Route: 042
     Dates: end: 20080701
  2. MIDAZOLAM HCL [Concomitant]
  3. MORPHINE SULFATE [Concomitant]
  4. ACETAMINOPHEN [Concomitant]

REACTIONS (4)
  - BRAIN OEDEMA [None]
  - CEREBRAL INFARCTION [None]
  - DRUG DISPENSING ERROR [None]
  - HYPOXIC ENCEPHALOPATHY [None]
